FAERS Safety Report 5526430-2 (Version None)
Quarter: 2007Q4

REPORT INFORMATION
  Report Type: 
  Country: None (occurrence: None)
  Receive Date: 20071121
  Receipt Date: 20071121
  Transmission Date: 20080405
  Serious: Yes (Hospitalization)
  Sender: FDA-Public Use
  Company Number: None

PATIENT
  Age: 58 Year
  Sex: Male

DRUGS (2)
  1. LINEZOLID [Suspect]
     Indication: SEPSIS
     Dosage: 600MG BID IV
     Route: 042
     Dates: start: 20070511, end: 20070513
  2. LINEZOLID [Suspect]
     Indication: URINARY TRACT INFECTION
     Dosage: 600MG BID IV
     Route: 042
     Dates: start: 20070511, end: 20070513

REACTIONS (1)
  - THROMBOCYTOPENIA [None]
